FAERS Safety Report 4424610-0 (Version None)
Quarter: 2004Q3

REPORT INFORMATION
  Report Type: 
  Country: None (occurrence: None)
  Receive Date: 20040812
  Receipt Date: 20040127
  Transmission Date: 20050211
  Serious: Yes (Disabling, Other)
  Sender: FDA-Public Use
  Company Number: PHEH2004US01264

PATIENT
  Age: 73 Year
  Sex: Female

DRUGS (14)
  1. MIACALCIN [Suspect]
     Indication: OSTEOPOROSIS
     Dosage: 200 IU, QD
     Dates: start: 19980101
  2. DIOVAN [Concomitant]
  3. TRILEPTAL [Concomitant]
  4. PLAVIX [Concomitant]
  5. PAXIL [Concomitant]
  6. ATROVENT [Concomitant]
  7. VENTOLIN [Concomitant]
  8. CALCIUM WITH VITAMIN D [Concomitant]
  9. PLETAL [Concomitant]
  10. BEXTRA [Concomitant]
  11. CLINDINIM [Concomitant]
  12. BACLOFEN [Concomitant]
  13. XANAX [Concomitant]
  14. SEREVENT [Concomitant]

REACTIONS (8)
  - ARTHRALGIA [None]
  - FLATULENCE [None]
  - GENERAL PHYSICAL HEALTH DETERIORATION [None]
  - IRRITABLE BOWEL SYNDROME [None]
  - NASAL ULCER [None]
  - NEUROPATHY [None]
  - PAIN [None]
  - RHINORRHOEA [None]
